FAERS Safety Report 23309937 (Version 2)
Quarter: 2024Q3

REPORT INFORMATION
  Report Type: Spontaneous
  Country: US (occurrence: US)
  Receive Date: 20231218
  Receipt Date: 20240906
  Transmission Date: 20241017
  Serious: No
  Sender: PFIZER
  Company Number: US-PFIZER INC-202300434860

PATIENT
  Age: 47 Year
  Sex: Male
  Weight: 99.79 kg

DRUGS (3)
  1. VELSIPITY [Suspect]
     Active Substance: ETRASIMOD ARGININE
     Indication: Colitis ulcerative
     Dosage: 2 MG, 1X/DAY
     Route: 048
     Dates: start: 202312
  2. VELSIPITY [Suspect]
     Active Substance: ETRASIMOD ARGININE
     Indication: Rectal haemorrhage
  3. VELSIPITY [Suspect]
     Active Substance: ETRASIMOD ARGININE
     Indication: Colitis ulcerative

REACTIONS (5)
  - Muscle spasms [Unknown]
  - Visual impairment [Unknown]
  - Metamorphopsia [Unknown]
  - Migraine [Unknown]
  - Hypoaesthesia [Unknown]
